FAERS Safety Report 10592445 (Version 1)
Quarter: 2014Q4

REPORT INFORMATION
  Report Type: Report from Study
  Country: US (occurrence: US)
  Receive Date: 20141119
  Receipt Date: 20141119
  Transmission Date: 20150529
  Serious: Yes (Life-Threatening, Other)
  Sender: FDA-Public Use
  Company Number: US-PFIZER INC-2014313092

PATIENT
  Age: 59 Year
  Sex: Female
  Weight: 44 kg

DRUGS (36)
  1. FLAGYL [Concomitant]
     Active Substance: METRONIDAZOLE\METRONIDAZOLE HYDROCHLORIDE
     Indication: CLOSTRIDIUM DIFFICILE INFECTION
     Dosage: 1500 MG, (500 MG 1 IN 8 HR)
     Route: 042
     Dates: start: 20130622, end: 20130723
  2. OFIRMEV [Concomitant]
     Active Substance: ACETAMINOPHEN
     Dosage: 650 MG, AS NEEDED
     Route: 042
     Dates: start: 20130630, end: 20130813
  3. BREVIBLOC [Concomitant]
     Active Substance: ESMOLOL HYDROCHLORIDE
     Dosage: 2000 MG, UNK
     Route: 042
     Dates: start: 20130619, end: 20130619
  4. LASIX [Concomitant]
     Active Substance: FUROSEMIDE
     Dosage: SINGLE DOSE
     Route: 042
     Dates: start: 201306, end: 201306
  5. LEVALBUTEROL [Concomitant]
     Active Substance: LEVALBUTEROL
     Dosage: 1.25 MG, UNK
     Route: 055
     Dates: start: 20130618, end: 20130704
  6. LOPRESSOR [Concomitant]
     Active Substance: METOPROLOL TARTRATE
     Dosage: 200 MG, (100 MG 2 IN 1D)
     Route: 048
     Dates: start: 20130629, end: 20130701
  7. PHENYLEPHRINE [Concomitant]
     Active Substance: PHENYLEPHRINE\PHENYLEPHRINE HYDROCHLORIDE
     Dosage: 50 MG, UNK
     Route: 042
     Dates: start: 20130619, end: 20130622
  8. SODIUM BICARBONATE. [Concomitant]
     Active Substance: SODIUM BICARBONATE
     Dosage: 150 MEQ, UNK
     Route: 042
     Dates: start: 20130619, end: 20130622
  9. SYMBICORT [Concomitant]
     Active Substance: BUDESONIDE\FORMOTEROL FUMARATE DIHYDRATE
     Dosage: 4 DF, (2 DOSAGE FORMS 2 IN 1 D)
     Route: 055
     Dates: start: 20130629, end: 20130701
  10. SODIUM CHLORIDE. [Concomitant]
     Active Substance: SODIUM CHLORIDE
     Dosage: 7 %, (1 IN 6 HR)
     Route: 042
     Dates: start: 20130628, end: 20130814
  11. NORMAL SALINE [Concomitant]
     Active Substance: SODIUM CHLORIDE
     Dosage: UNK, AS NEEDED
     Route: 042
     Dates: start: 20130619, end: 20130701
  12. K-LOR [Concomitant]
     Dosage: 40 MEQ, UNK
     Route: 048
  13. FENTANYL. [Concomitant]
     Active Substance: FENTANYL
     Dosage: 20 MCG
     Route: 042
     Dates: start: 20130619, end: 20130625
  14. MAGNESIUM SULFATE. [Concomitant]
     Active Substance: MAGNESIUM SULFATE
     Dosage: 2 MG, UNK
     Route: 042
  15. AZITHROMYCIN [Suspect]
     Active Substance: AZITHROMYCIN ANHYDROUS
     Dosage: 500 MG, UNK
     Route: 042
  16. ACETYLCYSTEINE. [Concomitant]
     Active Substance: ACETYLCYSTEINE
     Dosage: (1 IN 4 HR)
     Route: 055
     Dates: start: 20130630, end: 20130701
  17. LOVENOX [Concomitant]
     Active Substance: ENOXAPARIN SODIUM
     Route: 058
  18. INSULIN REGULAR [Concomitant]
     Active Substance: INSULIN NOS
     Dosage: UNK
     Route: 058
     Dates: start: 20130618, end: 20130718
  19. VERSED [Concomitant]
     Active Substance: MIDAZOLAM HYDROCHLORIDE
     Dosage: 100 MG, UNK
     Route: 042
     Dates: start: 20130619, end: 20130625
  20. PROTONIX [Concomitant]
     Active Substance: PANTOPRAZOLE SODIUM
     Dosage: 40 MG, (40 MG 1 IN 1 D)
     Route: 042
     Dates: start: 20130623, end: 20130711
  21. AZACTAM [Concomitant]
     Active Substance: AZTREONAM
     Dosage: 6 G, (2 GM 1 IN 8 HR)
     Route: 042
     Dates: start: 20130630, end: 20130712
  22. LANOXIN [Concomitant]
     Active Substance: DIGOXIN
     Dosage: SINGLE DOSE
  23. NORCO [Concomitant]
     Active Substance: ACETAMINOPHEN\HYDROCODONE BITARTRATE
     Dosage: 1 DF, UNK
     Route: 048
     Dates: start: 20130626, end: 20130701
  24. IPRATROPIUM [Concomitant]
     Active Substance: IPRATROPIUM
     Dosage: UNK
     Route: 055
     Dates: start: 20130618, end: 20130704
  25. KCL [Concomitant]
     Active Substance: POTASSIUM CHLORIDE
     Dosage: 40 MEQ, AS NEEDED
     Route: 042
     Dates: start: 20130619, end: 20130704
  26. XYLOCAINE [Concomitant]
     Active Substance: LIDOCAINE HYDROCHLORIDE
     Dosage: UNK, AS NEEDED
     Dates: start: 20130624, end: 20130719
  27. ATIVAN [Concomitant]
     Active Substance: LORAZEPAM
     Dosage: 1 MG, UNK
     Route: 042
     Dates: start: 20130618, end: 20130626
  28. MAGNESIUM SULFATE. [Concomitant]
     Active Substance: MAGNESIUM SULFATE
     Dosage: 4 MG, UNK
     Route: 042
  29. LEVOPHED [Concomitant]
     Active Substance: NOREPINEPHRINE BITARTRATE
     Dosage: 4 MG, UNK
     Route: 042
     Dates: start: 20130619, end: 20130622
  30. VANCOCIN [Concomitant]
     Active Substance: VANCOMYCIN HYDROCHLORIDE
     Indication: CLOSTRIDIUM DIFFICILE INFECTION
     Dosage: 2000 MG, (500 MG 1 IN 6 HR)
     Route: 048
     Dates: start: 20130620, end: 20130704
  31. FLAGYL [Concomitant]
     Active Substance: METRONIDAZOLE\METRONIDAZOLE HYDROCHLORIDE
     Dosage: 1500 MG, (500 MG 1 IN 8 HR)
     Route: 048
     Dates: start: 20130723, end: 20130811
  32. DIAMOX SEQUELS [Concomitant]
     Active Substance: ACETAZOLAMIDE
     Dosage: 1000 MG, (250 MG 1 IN 6 HR)
     Route: 042
     Dates: start: 20130624, end: 20130625
  33. ADENOSINE. [Concomitant]
     Active Substance: ADENOSINE
     Dosage: 12 MG, ONCE
     Route: 042
     Dates: start: 20130619, end: 20130619
  34. ALTEPLASE [Concomitant]
     Active Substance: ALTEPLASE
     Dosage: 2 MG, ONCE
     Route: 042
  35. DOBUTAMINE [Concomitant]
     Active Substance: DOBUTAMINE\DOBUTAMINE HYDROCHLORIDE
     Dosage: UNK
     Route: 042
     Dates: start: 20130621, end: 20130622
  36. LACTULOSE. [Concomitant]
     Active Substance: LACTULOSE
     Dosage: 60 G, (30 GM 1 IN 12 HR)
     Route: 048
     Dates: start: 20130625, end: 20130704

REACTIONS (2)
  - Myocardial infarction [Recovered/Resolved]
  - Colitis [Recovered/Resolved]

NARRATIVE: CASE EVENT DATE: 20130621
